FAERS Safety Report 14981634 (Version 4)
Quarter: 2018Q4

REPORT INFORMATION
  Report Type: Report from Study
  Country: US (occurrence: US)
  Receive Date: 20180607
  Receipt Date: 20181204
  Transmission Date: 20190204
  Serious: Yes (Hospitalization, Other)
  Sender: FDA-Public Use
  Company Number: PHHY2018US035759

PATIENT
  Age: 17 Year
  Sex: Male
  Weight: 58.9 kg

DRUGS (23)
  1. LACTOBACILLUS [Concomitant]
     Active Substance: LACTOBACILLUS ACIDOPHILUS
     Indication: ANTIBIOTIC THERAPY
     Dosage: 1 CUP, QD
     Route: 048
     Dates: start: 20180522, end: 20180524
  2. LIDOCAINE AND PRILOCAINE [Concomitant]
     Active Substance: LIDOCAINE\PRILOCAINE
     Indication: PAIN
     Dosage: 1 APPLICATION, ONCE/SINGLE
     Route: 061
     Dates: start: 20180524, end: 20180524
  3. SODIUM CHLORIDE. [Concomitant]
     Active Substance: SODIUM CHLORIDE
     Dosage: 4 ML, QD
     Route: 055
     Dates: start: 20180517
  4. TYLENOL [Concomitant]
     Active Substance: ACETAMINOPHEN
     Indication: PRODUCT USED FOR UNKNOWN INDICATION
     Dosage: 500 MG, Q4H PM
     Route: 048
     Dates: start: 20180517
  5. NARCAN [Concomitant]
     Active Substance: NALOXONE HYDROCHLORIDE
     Indication: PAIN
     Dosage: 1 MG, PRN
     Route: 042
     Dates: start: 20180222, end: 20180227
  6. ACETAMINOPHEN. [Concomitant]
     Active Substance: ACETAMINOPHEN
     Indication: PAIN
  7. CREON [Concomitant]
     Active Substance: PANCRELIPASE AMYLASE\PANCRELIPASE LIPASE\PANCRELIPASE PROTEASE
     Dosage: TID (6 CAPSULES WITH MEAL, 4-5 CAPSULES WITH SNACK)
     Route: 048
     Dates: start: 20180517
  8. SODIUM CHLORIDE. [Concomitant]
     Active Substance: SODIUM CHLORIDE
     Indication: CHRONIC SINUSITIS
     Dosage: UNK
     Route: 065
     Dates: start: 20140207
  9. TOBI PODHALER [Suspect]
     Active Substance: TOBRAMYCIN
     Indication: PSEUDOMONAS INFECTION
     Dosage: 112 MG, BID
     Route: 055
     Dates: start: 20180115
  10. ZITHROMAX [Concomitant]
     Active Substance: AZITHROMYCIN DIHYDRATE
     Indication: PRODUCT USED FOR UNKNOWN INDICATION
     Dosage: 500 MG, QD (MONDAY, WEDNESDAY, FRIDAY)
     Route: 048
     Dates: start: 20180518
  11. TOBI PODHALER [Suspect]
     Active Substance: TOBRAMYCIN
     Dosage: 112 MG, BID
     Route: 065
     Dates: start: 20180501, end: 20180517
  12. PULMOZYME [Concomitant]
     Active Substance: DORNASE ALFA
     Dosage: 2.5 MG, BID
     Route: 055
     Dates: start: 20180517
  13. PEDIASURE [Concomitant]
     Active Substance: VITAMINS
     Indication: PANCREATIC FAILURE
     Dosage: 1.5 OT, UNK
     Route: 065
     Dates: start: 20140320
  14. KENALOG [Concomitant]
     Active Substance: TRIAMCINOLONE ACETONIDE
     Indication: RASH
     Dosage: BID AS NEEDED FOR RASH
     Route: 061
     Dates: start: 20180517, end: 20180524
  15. CREON [Concomitant]
     Active Substance: PANCRELIPASE AMYLASE\PANCRELIPASE LIPASE\PANCRELIPASE PROTEASE
     Indication: PANCREATIC FAILURE
     Dosage: UNK
     Route: 065
     Dates: start: 20170823
  16. HEPARIN [Concomitant]
     Active Substance: HEPARIN SODIUM
     Indication: PRODUCT USED FOR UNKNOWN INDICATION
     Dosage: Q6H PM (30 UNITS/3 ML); 12 ML SYRINGE
     Route: 042
     Dates: start: 20180517, end: 20180524
  17. TOBI PODHALER [Suspect]
     Active Substance: TOBRAMYCIN
     Indication: CYSTIC FIBROSIS
     Dosage: UNK
     Route: 055
     Dates: start: 20150729
  18. ACETAMINOPHEN. [Concomitant]
     Active Substance: ACETAMINOPHEN
     Indication: PYREXIA
     Dosage: 500 MG, PRN
     Route: 048
     Dates: start: 20180517, end: 20180524
  19. PULMOZYME [Concomitant]
     Active Substance: DORNASE ALFA
     Indication: CYSTIC FIBROSIS LUNG
     Dosage: UNK
     Route: 065
     Dates: start: 20020214
  20. ALBUTEROL. [Concomitant]
     Active Substance: ALBUTEROL
     Indication: CYSTIC FIBROSIS LUNG
     Dosage: UNK
     Route: 065
     Dates: start: 20010823
  21. PROVENTIL [Concomitant]
     Active Substance: ALBUTEROL
     Indication: PRODUCT USED FOR UNKNOWN INDICATION
     Dosage: 2.5 MG, Q4H
     Route: 055
     Dates: start: 20180517
  22. BENADRYL [Concomitant]
     Active Substance: DIPHENHYDRAMINE HYDROCHLORIDE
     Indication: PRODUCT USED FOR UNKNOWN INDICATION
     Dosage: 25 MG, Q8H
     Route: 048
     Dates: start: 20180517, end: 20180524
  23. DIPHENHYDRAMINE HYDROCHLORIDE. [Concomitant]
     Active Substance: DIPHENHYDRAMINE HYDROCHLORIDE
     Indication: PREMEDICATION
     Dosage: 25 MG, Q8H
     Route: 048
     Dates: start: 20180517, end: 20180524

REACTIONS (23)
  - Dyspnoea [Unknown]
  - Wheezing [Unknown]
  - Hypoxia [Unknown]
  - Rhinorrhoea [Unknown]
  - Infective pulmonary exacerbation of cystic fibrosis [Recovered/Resolved]
  - Cough [Recovered/Resolved]
  - Rales [Unknown]
  - Decreased appetite [Unknown]
  - Pyrexia [Unknown]
  - Dysphonia [Unknown]
  - Hypoxia [Recovered/Resolved]
  - Staphylococcal infection [Unknown]
  - Respiratory distress [Unknown]
  - Pancreatic failure [Unknown]
  - Heart rate increased [Unknown]
  - Cough [Recovered/Resolved]
  - Infective pulmonary exacerbation of cystic fibrosis [Recovered/Resolved]
  - Productive cough [Unknown]
  - Dermatitis contact [Recovered/Resolved]
  - Respiratory distress [Recovered/Resolved]
  - Stenotrophomonas infection [Unknown]
  - Infective pulmonary exacerbation of cystic fibrosis [Unknown]
  - Blood pressure diastolic decreased [Unknown]

NARRATIVE: CASE EVENT DATE: 20180201
